FAERS Safety Report 6839349-1 (Version None)
Quarter: 2010Q3

REPORT INFORMATION
  Report Type: 
  Country: None (occurrence: None)
  Receive Date: 20100714
  Receipt Date: 20100707
  Transmission Date: 20110219
  Serious: Yes (Life-Threatening, Hospitalization)
  Sender: FDA-Public Use
  Company Number: PHHY2010DE21503

PATIENT
  Sex: Female
  Weight: 91 kg

DRUGS (16)
  1. ALISKIREN ALI+ [Suspect]
     Indication: HYPERTENSION
     Dosage: 300 MG, QD
     Route: 048
     Dates: start: 20090305, end: 20091210
  2. HYDROCHLOROTHIAZIDE [Suspect]
     Indication: DEHYDRATION
     Dosage: 12.5 MG, QD
     Route: 048
     Dates: start: 20070415
  3. HYDROCHLOROTHIAZIDE [Suspect]
     Dosage: 25 MG, QD
     Route: 048
  4. CAPTOPRIL [Concomitant]
     Indication: HYPERTENSION
     Dosage: 100 MG/D
     Route: 048
     Dates: start: 20070415, end: 20091210
  5. TRIAMTEREN [Concomitant]
     Indication: HYPERTENSION
     Dosage: 25 MG/D
     Route: 048
     Dates: start: 20060107, end: 20091210
  6. BISOPROLOL [Concomitant]
     Indication: HYPERTENSION
     Dosage: UNK
     Route: 048
     Dates: start: 20040926
  7. NEPRESSOL [Concomitant]
     Indication: HYPERTENSION
     Dosage: UNK
     Route: 048
     Dates: start: 20020507, end: 20091210
  8. BERLINSULIN H NORMAL [Concomitant]
     Indication: TYPE 2 DIABETES MELLITUS
     Dosage: 58 IU
     Route: 058
     Dates: start: 19980603
  9. LEVEMIR [Concomitant]
     Indication: TYPE 2 DIABETES MELLITUS
     Dosage: 40 IU
     Route: 058
     Dates: start: 20080716, end: 20091210
  10. ACE INHIBITOR NOS [Concomitant]
  11. CALCIUM CHANNEL BLOCKERS [Concomitant]
     Dosage: UNK
     Dates: start: 20091217
  12. PLATELET AGGREGATION INHIBITORS [Concomitant]
     Dosage: UNK
  13. RAMIPRIL [Concomitant]
     Dosage: UNK
     Dates: start: 20100201
  14. AMLODIPINE [Concomitant]
     Dosage: UNK
     Dates: start: 20091217
  15. ASPIRIN [Concomitant]
     Dosage: UNK
     Dates: start: 20091217
  16. SIMVASTATIN [Concomitant]
     Dosage: UNK
     Dates: start: 20091217

REACTIONS (4)
  - CEREBRAL ARTERY EMBOLISM [None]
  - CEREBROVASCULAR ACCIDENT [None]
  - HEMIPARESIS [None]
  - HYPOTONIA [None]
